FAERS Safety Report 8953868 (Version 1)
Quarter: 2012Q4

REPORT INFORMATION
  Report Type: 
  Country: US (occurrence: US)
  Receive Date: 20121206
  Receipt Date: 20121206
  Transmission Date: 20130627
  Serious: Yes (Other)
  Sender: FDA-Public Use
  Company Number: CHPA2012US024349

PATIENT
  Sex: Male

DRUGS (1)
  1. BENEFIBER UNKNOWN [Suspect]
     Dosage: Unk, Unk
     Route: 048

REACTIONS (2)
  - Cerebrovascular accident [Unknown]
  - Arterial occlusive disease [Not Recovered/Not Resolved]
